FAERS Safety Report 12827140 (Version 1)
Quarter: 2016Q4

REPORT INFORMATION
  Report Type: Spontaneous
  Country: US (occurrence: US)
  Receive Date: 20161007
  Receipt Date: 20161007
  Transmission Date: 20170207
  Serious: No
  Sender: FDA-Public Use
  Company Number: US-INDIVIOR LIMITED-INDV-086235-2015

PATIENT
  Age: 44 Year
  Sex: Male

DRUGS (2)
  1. SUBOXONE [Suspect]
     Active Substance: BUPRENORPHINE HYDROCHLORIDE\NALOXONE HYDROCHLORIDE
     Indication: ALCOHOLISM
     Dosage: 4 MG DAILY (THREE AND A HALF MONTHS)
     Route: 060
     Dates: start: 201507, end: 201511
  2. SUBOXONE [Suspect]
     Active Substance: BUPRENORPHINE HYDROCHLORIDE\NALOXONE HYDROCHLORIDE
     Dosage: 2MG DAILY (1-2 WEEKS)
     Route: 060
     Dates: start: 201511, end: 201511

REACTIONS (10)
  - Influenza like illness [Recovering/Resolving]
  - Off label use [Recovered/Resolved]
  - Product preparation error [Recovered/Resolved]
  - Intentional underdose [Recovered/Resolved]
  - Drug withdrawal syndrome [Not Recovered/Not Resolved]
  - Insomnia [Recovered/Resolved]
  - Nausea [Recovering/Resolving]
  - Psychomotor hyperactivity [Not Recovered/Not Resolved]
  - Diarrhoea [Recovering/Resolving]
  - Drug dependence [Not Recovered/Not Resolved]

NARRATIVE: CASE EVENT DATE: 2015
